FAERS Safety Report 22151862 (Version 1)
Quarter: 2023Q1

REPORT INFORMATION
  Report Type: Other
  Country: IN (occurrence: None)
  Receive Date: 20230329
  Receipt Date: 20230329
  Transmission Date: 20230417
  Serious: Yes (Other)
  Sender: FDA-Public Use
  Company Number: IN-ROCHE-3316749

PATIENT
  Age: 80 Year
  Sex: Female

DRUGS (1)
  1. PHESGO [Suspect]
     Active Substance: HYALURONIDASE-ZZXF\PERTUZUMAB\TRASTUZUMAB
     Indication: Breast cancer metastatic
     Route: 058
     Dates: start: 20230119

REACTIONS (7)
  - Pruritus [Unknown]
  - Decreased appetite [Unknown]
  - Skin disorder [Unknown]
  - Ageusia [Unknown]
  - Asthenia [Unknown]
  - Cerebrovascular accident [Unknown]
  - Full blood count abnormal [Unknown]
